FAERS Safety Report 9351654 (Version 13)
Quarter: 2015Q3

REPORT INFORMATION
  Report Type: Report from Study
  Country: AU (occurrence: AU)
  Receive Date: 20130617
  Receipt Date: 20150727
  Transmission Date: 20151125
  Serious: Yes (Hospitalization)
  Sender: FDA-Public Use
  Company Number: AU-ROCHE-1212081

PATIENT
  Age: 45 Year
  Sex: Male
  Weight: 98 kg

DRUGS (18)
  1. ZOLOFT [Concomitant]
     Active Substance: SERTRALINE HYDROCHLORIDE
     Indication: MOOD SWINGS
     Route: 065
     Dates: start: 20130501, end: 20131016
  2. PANADOL (AUSTRALIA) [Concomitant]
     Indication: CANCER PAIN
     Route: 065
     Dates: start: 20130306
  3. VITAMIN B COMPLEX [Concomitant]
     Active Substance: CYANOCOBALAMIN\DEXPANTHENOL\NIACINAMIDE\PYRIDOXINE HYDROCHLORIDE\RIBOFLAVIN 5^-PHOSPHATE SODIUM\THIAMINE HYDROCHLORIDE\VITAMIN B COMPLEX
     Indication: MUSCLE SPASMS
     Route: 065
     Dates: start: 20130724
  4. OXYNORM [Concomitant]
     Active Substance: OXYCODONE HYDROCHLORIDE
     Indication: MOOD SWINGS
     Route: 065
     Dates: end: 20130306
  5. OXYNORM [Concomitant]
     Active Substance: OXYCODONE HYDROCHLORIDE
     Route: 065
     Dates: start: 20131016
  6. ZOLOFT [Concomitant]
     Active Substance: SERTRALINE HYDROCHLORIDE
     Route: 065
     Dates: start: 20131016
  7. OXYNORM [Concomitant]
     Active Substance: OXYCODONE HYDROCHLORIDE
     Indication: CANCER PAIN
     Route: 065
     Dates: start: 20130306
  8. ADVANTAN OINTMENT [Concomitant]
     Indication: PERICHONDRITIS
     Dates: start: 20130708
  9. FERROGRADUMET [Concomitant]
     Indication: ANAEMIA
     Route: 065
     Dates: start: 20131113, end: 20140401
  10. ZOLOFT [Concomitant]
     Active Substance: SERTRALINE HYDROCHLORIDE
     Indication: DEPRESSION
     Route: 065
     Dates: start: 200712, end: 20130501
  11. PANADOL (AUSTRALIA) [Concomitant]
     Indication: MOOD SWINGS
     Route: 065
     Dates: end: 20130306
  12. KEFLEX [Concomitant]
     Active Substance: CEPHALEXIN
     Indication: CELLULITIS
     Route: 065
     Dates: start: 20130703, end: 20130713
  13. ASPIRIN. [Concomitant]
     Active Substance: ASPIRIN
     Indication: CEREBROVASCULAR ACCIDENT
     Route: 065
     Dates: start: 200412
  14. ZOLOFT [Concomitant]
     Active Substance: SERTRALINE HYDROCHLORIDE
     Route: 065
     Dates: start: 20130501, end: 20130902
  15. CLINDATECH [Concomitant]
     Indication: FOLLICULITIS
     Route: 065
     Dates: start: 20130724
  16. VISMODEGIB [Suspect]
     Active Substance: VISMODEGIB
     Indication: BASAL CELL CARCINOMA
     Dosage: LAST DOSE PRIOR TO ACUTE SINUSITIS: 08/SEP/2013.?LAST DOSE PRIOR TO EPISTAXIS: 27/MAR/2013
     Route: 048
     Dates: start: 20121213
  17. DUROGESIC D TRANS [Concomitant]
     Active Substance: FENTANYL
     Indication: CANCER PAIN
     Route: 062
     Dates: start: 201210
  18. ZOLOFT [Concomitant]
     Active Substance: SERTRALINE HYDROCHLORIDE
     Route: 065
     Dates: start: 20130902, end: 20140901

REACTIONS (2)
  - Acute sinusitis [Recovered/Resolved]
  - Epistaxis [Recovered/Resolved]

NARRATIVE: CASE EVENT DATE: 20130328
